FAERS Safety Report 5852399-7 (Version None)
Quarter: 2008Q3

REPORT INFORMATION
  Report Type: 
  Country: None (occurrence: None)
  Receive Date: 20080819
  Receipt Date: 20080804
  Transmission Date: 20090109
  Serious: Yes (Death)
  Sender: FDA-Public Use
  Company Number: KADN20080316

PATIENT
  Age: 46 Year
  Sex: Female

DRUGS (5)
  1. MORPHINE [Suspect]
     Dosage: ORAL
     Route: 048
     Dates: end: 20060101
  2. PROPOXYPHENE HCL AND ACETAMINOPHEN [Suspect]
     Dosage: ORAL
     Route: 048
     Dates: end: 20060101
  3. CITALOPRAM HYDROBROMIDE [Suspect]
     Dosage: ORAL
     Route: 048
     Dates: end: 20060101
  4. PREGABALIN [Concomitant]
  5. CLONAZEPAM [Concomitant]

REACTIONS (4)
  - ASPIRATION [None]
  - DRUG TOXICITY [None]
  - PNEUMONIA [None]
  - PULMONARY OEDEMA [None]
